FAERS Safety Report 19441172 (Version 1)
Quarter: 2021Q2

REPORT INFORMATION
  Report Type: Spontaneous
  Country: US (occurrence: US)
  Receive Date: 20210617
  Receipt Date: 20210617
  Transmission Date: 20210717
  Serious: Yes (Death)
  Sender: FDA-Public Use
  Company Number: None

PATIENT
  Age: 61 Year
  Sex: Female

DRUGS (15)
  1. INSULIN ASPA INJ FLEXPEN [Concomitant]
  2. LISINOPRIL. [Concomitant]
     Active Substance: LISINOPRIL
  3. VITAMIN D2 [Concomitant]
     Active Substance: ERGOCALCIFEROL
  4. GLATIRAMER [Suspect]
     Active Substance: GLATIRAMER
     Indication: MULTIPLE SCLEROSIS
     Dosage: ?          OTHER FREQUENCY:TIW;?
     Route: 058
     Dates: start: 20210421, end: 20210610
  5. METHYLPHENID [Concomitant]
     Active Substance: METHYLPHENIDATE
  6. CONTOUR [Concomitant]
  7. NORTRIPTYLIN [Concomitant]
     Active Substance: NORTRIPTYLINE
  8. SIMVASTATIN. [Concomitant]
     Active Substance: SIMVASTATIN
  9. FREESTY LIBR KIT 2 SENSOR [Concomitant]
  10. GABAPENTIN. [Concomitant]
     Active Substance: GABAPENTIN
  11. ELIQUIS [Concomitant]
     Active Substance: APIXABAN
  12. BENZONATATE. [Concomitant]
     Active Substance: BENZONATATE
  13. CHOLESTYRAM POW [Concomitant]
  14. LEVEMIR [Concomitant]
     Active Substance: INSULIN DETEMIR
  15. OMEPRAZOLE. [Concomitant]
     Active Substance: OMEPRAZOLE

REACTIONS (1)
  - Death [None]

NARRATIVE: CASE EVENT DATE: 20210610
